FAERS Safety Report 8009256-X (Version None)
Quarter: 2011Q4

REPORT INFORMATION
  Report Type: 
  Country: None (occurrence: None)
  Receive Date: 20111227
  Receipt Date: 20111221
  Transmission Date: 20120403
  Serious: Yes (Other)
  Sender: FDA-Public Use
  Company Number: US-COVIDIEN/TYCO HEALTHCARE/MALLINCKRODT-T201102953

PATIENT
  Sex: Male

DRUGS (3)
  1. PROPOXYPHENE HYDROCHLORIDE [Suspect]
     Dosage: UNK
  2. PROPOXYPHENE HYDROCHLORIDE [Suspect]
     Dosage: UNK
     Dates: start: 19850101, end: 20100101
  3. PROPOXYPHENE HCL AND ACETAMINOPHEN [Suspect]
     Dosage: UNK
     Dates: start: 20070101, end: 20080101

REACTIONS (1)
  - MYOCARDIAL INFARCTION [None]
